FAERS Safety Report 23629505 (Version 2)
Quarter: 2024Q4

REPORT INFORMATION
  Report Type: Spontaneous
  Country: US (occurrence: US)
  Receive Date: 20240314
  Receipt Date: 20241021
  Transmission Date: 20250115
  Serious: Yes (Hospitalization, Other)
  Sender: JUBILANT
  Company Number: US-JUBILANT CADISTA PHARMACEUTICALS-2024US000351

PATIENT
  Age: 51 Year
  Sex: Female

DRUGS (12)
  1. CLONIDINE [Suspect]
     Active Substance: CLONIDINE
     Indication: Spinal pain
     Dosage: 300 MICROGRAM PER MICROLITRE, 24-HOUR DOSES
     Dates: start: 200702
  2. CLONIDINE [Suspect]
     Active Substance: CLONIDINE
     Dosage: 300 MICROGRAM PER MICROLITRE, 24-HOUR DOSES
  3. CLONIDINE [Suspect]
     Active Substance: CLONIDINE
     Dosage: 300 MICROGRAM PER MICROLITRE, 24-HOUR DOSES
     Dates: start: 2015
  4. CLONIDINE [Suspect]
     Active Substance: CLONIDINE
     Dosage: 300 MICROGRAM PER MICROLITRE, 24-HOUR DOSES
     Dates: start: 2020
  5. SUFENTANIL [Suspect]
     Active Substance: SUFENTANIL
     Indication: Spinal pain
     Dosage: 83 MCG, ONCE PER DAY
  6. SUFENTANIL [Suspect]
     Active Substance: SUFENTANIL
     Dosage: 100 MICROGRAM PER MILLILITRE
  7. SUFENTANIL [Suspect]
     Active Substance: SUFENTANIL
     Dosage: 114 MCG, ONCE PER DAY
  8. BUPIVACAINE [Suspect]
     Active Substance: BUPIVACAINE
     Indication: Spinal pain
     Dosage: 0.125%
  9. BUPIVACAINE [Suspect]
     Active Substance: BUPIVACAINE
     Dosage: 3 MG/ML
  10. BUPIVACAINE [Suspect]
     Active Substance: BUPIVACAINE
     Dosage: 4 MG, ONCE PER DAY
  11. FENTANYL [Concomitant]
     Active Substance: FENTANYL
     Indication: Spinal pain
     Dosage: 30 MCG/ML
  12. FENTANYL [Concomitant]
     Active Substance: FENTANYL
     Dosage: 50 MCG/ML

REACTIONS (1)
  - Injection site mass [Recovered/Resolved]

NARRATIVE: CASE EVENT DATE: 20200125
